FAERS Safety Report 4925892-9 (Version None)
Quarter: 2006Q1

REPORT INFORMATION
  Report Type: 
  Country: None (occurrence: None)
  Receive Date: 20060224
  Receipt Date: 20060224
  Transmission Date: 20060701
  Serious: Yes (Hospitalization)
  Sender: FDA-Public Use
  Company Number: None

PATIENT
  Age: 52 Year
  Sex: Female
  Weight: 85.27 kg

DRUGS (2)
  1. LOVENOX [Suspect]
     Indication: SURGERY
     Dosage: 40 MG BID SQ
     Route: 058
     Dates: start: 20051123, end: 20051124
  2. LOVENOX [Suspect]
     Indication: THROMBOSIS PROPHYLAXIS
     Dosage: 40 MG BID SQ
     Route: 058
     Dates: start: 20051123, end: 20051124

REACTIONS (5)
  - ABDOMINAL DISCOMFORT [None]
  - BOWEL SOUNDS ABNORMAL [None]
  - DYSURIA [None]
  - HAEMOGLOBIN DECREASED [None]
  - PELVIC HAEMATOMA [None]
